FAERS Safety Report 4820861-1 (Version None)
Quarter: 2005Q4

REPORT INFORMATION
  Report Type: 
  Country: None (occurrence: None)
  Receive Date: 20051104
  Receipt Date: 20050826
  Transmission Date: 20060501
  Serious: Yes (Hospitalization, Other)
  Sender: FDA-Public Use
  Company Number: GB-ABBOTT-05P-167-0309517-00

PATIENT
  Age: 20 Year
  Sex: Female

DRUGS (4)
  1. EPILIM [Suspect]
     Indication: EPILEPSY
  2. EPILIM [Suspect]
  3. EPILIM [Suspect]
     Route: 048
     Dates: start: 20050704, end: 20050711
  4. LAMOTRIGINE [Suspect]
     Indication: EPILEPSY
     Route: 048
     Dates: start: 20050606, end: 20050704

REACTIONS (9)
  - ASTHENIA [None]
  - BURNING SENSATION [None]
  - INFLUENZA LIKE ILLNESS [None]
  - MALAISE [None]
  - MENTAL DISORDER [None]
  - PRURITUS [None]
  - RASH MACULO-PAPULAR [None]
  - SWELLING [None]
  - SWELLING FACE [None]
